FAERS Safety Report 8828613 (Version 2)
Quarter: 2013Q2

REPORT INFORMATION
  Report Type: Spontaneous
  Country: BR (occurrence: BR)
  Receive Date: 20121005
  Receipt Date: 20130412
  Transmission Date: 20140414
  Serious: Yes (Hospitalization)
  Sender: FDA-Public Use
  Company Number: BR-AMGEN-BRASP2012062849

PATIENT
  Age: 26 Year
  Sex: Male
  Weight: 95 kg

DRUGS (2)
  1. ENBREL [Suspect]
     Indication: PSORIATIC ARTHROPATHY
     Dosage: 50 MG, 1X/WEEK
     Route: 058
     Dates: start: 201201, end: 201208
  2. ENBREL [Suspect]
     Dosage: UNK
     Dates: start: 201007

REACTIONS (2)
  - Accident [Unknown]
  - Ankle fracture [Unknown]
